FAERS Safety Report 4632670-7 (Version None)
Quarter: 2005Q2

REPORT INFORMATION
  Report Type: 
  Country: None (occurrence: None)
  Receive Date: 20050331
  Receipt Date: 20041007
  Transmission Date: 20051028
  Serious: Yes (Other)
  Sender: FDA-Public Use
  Company Number: 200414812BCC

PATIENT
  Age: 23 Year
  Sex: Female
  Weight: 58.9676 kg

DRUGS (1)
  1. ALEVE [Suspect]
     Indication: INTENTIONAL SELF-INJURY
     Dosage: ORAL
     Route: 048
     Dates: start: 20041007

REACTIONS (2)
  - STOMACH DISCOMFORT [None]
  - VOMITING [None]
